FAERS Safety Report 11450059 (Version 1)
Quarter: 2015Q3

REPORT INFORMATION
  Report Type: Spontaneous
  Country: US (occurrence: US)
  Receive Date: 20150903
  Receipt Date: 20150903
  Transmission Date: 20151125
  Serious: No
  Sender: FDA-Public Use
  Company Number: US-ROCHE-1079334

PATIENT
  Sex: Male

DRUGS (3)
  1. RIBAVIRIN. [Suspect]
     Active Substance: RIBAVIRIN
     Indication: HEPATITIS C
     Route: 065
     Dates: start: 20120514
  2. TELAPREVIR [Suspect]
     Active Substance: TELAPREVIR
     Indication: HEPATITIS C
     Route: 065
     Dates: start: 20120514
  3. PEGASYS [Suspect]
     Active Substance: PEGINTERFERON ALFA-2A
     Indication: HEPATITIS C
     Route: 058
     Dates: start: 20120514

REACTIONS (11)
  - Decreased appetite [Unknown]
  - Dysgeusia [Unknown]
  - Injection site reaction [Unknown]
  - Skin ulcer [Unknown]
  - Scratch [Unknown]
  - Pruritus generalised [Unknown]
  - Herpes virus infection [Unknown]
  - Rash [Recovering/Resolving]
  - Anaemia [Unknown]
  - Vomiting [Unknown]
  - Fatigue [Unknown]
